FAERS Safety Report 5796955-3 (Version None)
Quarter: 2008Q2

REPORT INFORMATION
  Report Type: 
  Country: None (occurrence: None)
  Receive Date: 20080627
  Receipt Date: 20080620
  Transmission Date: 20081010
  Serious: Yes (Hospitalization)
  Sender: FDA-Public Use
  Company Number: 2008JP002967

PATIENT
  Age: 71 Year
  Sex: Female

DRUGS (1)
  1. PROTOPIC [Suspect]
     Indication: DERMATITIS ATOPIC
     Dosage: 0.1% UNK, TOPICAL
     Route: 061
     Dates: start: 20010701

REACTIONS (1)
  - LYMPHOMA [None]
